FAERS Safety Report 6105389-3 (Version None)
Quarter: 2009Q1

REPORT INFORMATION
  Report Type: 
  Country: None (occurrence: None)
  Receive Date: 20090306
  Receipt Date: 20090224
  Transmission Date: 20090719
  Serious: Yes (Hospitalization)
  Sender: FDA-Public Use
  Company Number: JP-PFIZER INC-2009175974

PATIENT

DRUGS (6)
  1. SUNITINIB MALATE [Suspect]
     Indication: RENAL CELL CARCINOMA
     Dosage: 50 MG, 1X/DAY
     Route: 048
     Dates: start: 20081030
  2. LOXOPROFEN SODIUM [Concomitant]
     Dosage: UNK
     Route: 048
  3. GASTER [Concomitant]
     Route: 048
  4. POLLAKISU [Concomitant]
     Dosage: UNK
     Route: 048
  5. VESICARE [Concomitant]
     Dosage: UNK
     Route: 048
     Dates: start: 20081111
  6. PRIMPERAN [Concomitant]
     Route: 048

REACTIONS (7)
  - DIARRHOEA [None]
  - DISSEMINATED INTRAVASCULAR COAGULATION [None]
  - NEUTROPHIL COUNT DECREASED [None]
  - OEDEMA [None]
  - PLATELET COUNT DECREASED [None]
  - PYREXIA [None]
  - WHITE BLOOD CELL COUNT DECREASED [None]
